FAERS Safety Report 20190987 (Version 1)
Quarter: 2021Q4

REPORT INFORMATION
  Report Type: Spontaneous
  Country: CA (occurrence: CA)
  Receive Date: 20211216
  Receipt Date: 20211216
  Transmission Date: 20220303
  Serious: Yes (Other)
  Sender: FDA-Public Use
  Company Number: CA-SAMSUNG BIOEPIS-SB-2021-28719

PATIENT
  Age: 36 Year
  Sex: Male
  Weight: 93 kg

DRUGS (3)
  1. INFLIXIMAB [Suspect]
     Active Substance: INFLIXIMAB
     Indication: Crohn^s disease
     Route: 042
  2. BENADRYL [Concomitant]
     Active Substance: DIPHENHYDRAMINE HYDROCHLORIDE
     Indication: Premedication
     Route: 042
  3. HYDROCORTISONE [Concomitant]
     Active Substance: HYDROCORTISONE
     Indication: Premedication
     Route: 042

REACTIONS (8)
  - Arthralgia [Unknown]
  - Blister [Unknown]
  - Crohn^s disease [Unknown]
  - Dermatitis psoriasiform [Unknown]
  - Drug hypersensitivity [Unknown]
  - Erythema [Unknown]
  - Intentional product use issue [Unknown]
  - Off label use [Unknown]
